FAERS Safety Report 9818233 (Version 2)
Quarter: 2014Q1

REPORT INFORMATION
  Report Type: Spontaneous
  Country: FR (occurrence: FR)
  Receive Date: 20140115
  Receipt Date: 20140205
  Transmission Date: 20141002
  Serious: Yes (Hospitalization)
  Sender: FDA-Public Use
  Company Number: FR-ASTRAZENECA-2014SE02560

PATIENT
  Age: 3035 Day
  Sex: Male
  Weight: 26 kg

DRUGS (3)
  1. EMLA PATCH [Suspect]
     Indication: PAIN
     Route: 061
     Dates: start: 20131106, end: 20131106
  2. INFANRIXTETRA [Suspect]
     Indication: IMMUNISATION
     Route: 030
     Dates: start: 20131106, end: 20131106
  3. ADVIL [Suspect]
     Indication: PAIN
     Dosage: ONCE
     Route: 048
     Dates: start: 20131108, end: 20131108

REACTIONS (5)
  - Hyperthermia [Recovered/Resolved]
  - Injection site pain [Recovered/Resolved]
  - Cellulitis [Recovered/Resolved]
  - Injection site inflammation [Recovered/Resolved]
  - Vaccination site vesicles [Recovered/Resolved]
